FAERS Safety Report 7922402 (Version 3)
Quarter: 2013Q1

REPORT INFORMATION
  Report Type: Spontaneous
  Country: US (occurrence: US)
  Receive Date: 20110429
  Receipt Date: 20130211
  Transmission Date: 20140127
  Serious: No
  Sender: FDA-Public Use
  Company Number: US-ASTRAZENECA-2011SE06084

PATIENT
  Age: 70 Year
  Sex: Female

DRUGS (3)
  1. NEXIUM [Suspect]
     Route: 048
  2. NEXIUM [Suspect]
     Route: 048
  3. STATIN [Suspect]
     Route: 065

REACTIONS (12)
  - Bacterial infection [Unknown]
  - Abdominal distension [Unknown]
  - Blood cholesterol increased [Unknown]
  - Fungal infection [Unknown]
  - Blood glucose increased [Unknown]
  - Adverse drug reaction [Unknown]
  - Diabetes mellitus [Unknown]
  - Abasia [Unknown]
  - Depressed mood [Unknown]
  - Rash [Unknown]
  - Flatulence [Unknown]
  - Nausea [Unknown]
